FAERS Safety Report 8824457 (Version 1)
Quarter: 2012Q4

REPORT INFORMATION
  Report Type: 
  Country: US (occurrence: US)
  Receive Date: 20121004
  Receipt Date: 20121004
  Transmission Date: 20130627
  Serious: Yes (Other)
  Sender: FDA-Public Use
  Company Number: US-BAYER-2012-101125

PATIENT
  Sex: Female

DRUGS (1)
  1. ALEVE CAPLET/TABLET,MIDOL EXTENDED RELIEF CAPLET [Suspect]
     Dosage: UNK
     Route: 048
     Dates: end: 20120925

REACTIONS (5)
  - Chemical burn of gastrointestinal tract [Unknown]
  - Tongue eruption [Unknown]
  - Glossodynia [Unknown]
  - Abdominal discomfort [Not Recovered/Not Resolved]
  - Therapeutic response unexpected [None]
